FAERS Safety Report 9267961 (Version 2)
Quarter: 2013Q4

REPORT INFORMATION
  Report Type: Report from Study
  Country: US (occurrence: US)
  Receive Date: 20130502
  Receipt Date: 20131001
  Transmission Date: 20140711
  Serious: Yes (Hospitalization, Other)
  Sender: FDA-Public Use
  Company Number: US-ALEXION PHARMACEUTICALS INC.-A201201237

PATIENT
  Age: 55 Year
  Sex: Male
  Weight: 82.9 kg

DRUGS (22)
  1. SOLIRIS [Suspect]
     Indication: HAEMOLYTIC URAEMIC SYNDROME
     Dosage: 900 MG, Q2W
     Route: 042
     Dates: start: 20120503, end: 20120524
  2. SOLIRIS [Suspect]
     Dosage: 1200 MG, SINGLE
     Route: 042
     Dates: start: 20120531, end: 20120531
  3. SOLIRIS [Suspect]
     Dosage: 900 MG, Q2W
     Route: 042
     Dates: start: 20120614
  4. MINOXIDIL [Suspect]
     Dosage: 5 MG
  5. NORVASC [Concomitant]
     Indication: HYPERTENSION
  6. HYDRALAZINE [Concomitant]
     Indication: HYPERTENSION
  7. LASIX [Concomitant]
     Indication: HYPERTENSION
  8. RENVELA [Concomitant]
  9. FOLIC ACID [Concomitant]
  10. LOSARTAN [Concomitant]
  11. ATIVAN [Concomitant]
  12. KLONOPIN [Concomitant]
  13. ZOLOFT [Concomitant]
     Dosage: UNK
  14. OMEPRAZOLE [Concomitant]
     Dosage: UNK
  15. ISOSORBIDE MONONITRATE [Concomitant]
     Dosage: UNK
  16. LOPRESSOR [Concomitant]
     Dosage: UNK
  17. CRESTOR [Concomitant]
     Dosage: UNK
  18. MORPHINE [Concomitant]
     Dosage: UNK
  19. XANAX [Concomitant]
     Dosage: UNK
  20. CLONIDINE [Concomitant]
     Dosage: UNK
  21. SEROQUEL [Concomitant]
     Dosage: UNK
  22. PANCREATIC ENZYMES [Suspect]

REACTIONS (8)
  - Vision blurred [Recovered/Resolved]
  - Hypotension [Unknown]
  - Hypertension [Recovered/Resolved]
  - Headache [Recovered/Resolved]
  - Brain natriuretic peptide increased [Unknown]
  - Pain [Recovered/Resolved]
  - Ejection fraction decreased [Unknown]
  - Fatigue [Recovered/Resolved]
